FAERS Safety Report 4539748-7 (Version None)
Quarter: 2004Q4

REPORT INFORMATION
  Report Type: 
  Country: None (occurrence: None)
  Receive Date: 20041222
  Receipt Date: 20041210
  Transmission Date: 20050328
  Serious: Yes (Other)
  Sender: FDA-Public Use
  Company Number: 2004114917

PATIENT
  Age: 27 Year
  Sex: Female
  Weight: 99.3377 kg

DRUGS (5)
  1. DEPO-PROVERA [Suspect]
     Indication: CONTRACEPTION
     Dosage: SEE IMAGE
     Route: 030
     Dates: start: 20010104, end: 20010104
  2. DEPO-PROVERA [Suspect]
     Indication: CONTRACEPTION
     Dosage: SEE IMAGE
     Route: 030
     Dates: start: 20041103, end: 20041103
  3. ESOMEPRAZOLE (ESOMEPRAZOLE) [Concomitant]
  4. METOCLOPRAMIDE [Concomitant]
  5. TEGASEROD (TEGASEROD) [Concomitant]

REACTIONS (7)
  - AMENORRHOEA [None]
  - CHOKING [None]
  - DEPRESSION [None]
  - DYSPHAGIA [None]
  - FEELING ABNORMAL [None]
  - SENSATION OF FOREIGN BODY [None]
  - TREATMENT NONCOMPLIANCE [None]
